FAERS Safety Report 6368994-5 (Version None)
Quarter: 2009Q3

REPORT INFORMATION
  Report Type: 
  Country: None (occurrence: None)
  Receive Date: 20090916
  Receipt Date: 20090908
  Transmission Date: 20100115
  Serious: Yes (Other)
  Sender: FDA-Public Use
  Company Number: ADR19592009

PATIENT
  Age: 25 Year
  Sex: Female

DRUGS (2)
  1. SERTRALINE HCL [Suspect]
     Dosage: 100MG, ORAL
     Route: 048
  2. IMPLANON [Concomitant]

REACTIONS (3)
  - DRUG EXPOSURE DURING PREGNANCY [None]
  - DRUG INTERACTION [None]
  - ECTOPIC PREGNANCY [None]
